FAERS Safety Report 15372305 (Version 3)
Quarter: 2018Q4

REPORT INFORMATION
  Report Type: Report from Study
  Country: US (occurrence: US)
  Receive Date: 20180911
  Receipt Date: 20181112
  Transmission Date: 20190204
  Serious: No
  Sender: FDA-Public Use
  Company Number: US-009507513-1809USA004215

PATIENT
  Sex: Female

DRUGS (1)
  1. PROVENTIL [Suspect]
     Active Substance: ALBUTEROL
     Dosage: UNK

REACTIONS (4)
  - Underdose [Unknown]
  - Product use complaint [Unknown]
  - No adverse event [Unknown]
  - Drug ineffective [Unknown]
